FAERS Safety Report 4866346-8 (Version None)
Quarter: 2005Q4

REPORT INFORMATION
  Report Type: 
  Country: None (occurrence: None)
  Receive Date: 20051221
  Receipt Date: 20051208
  Transmission Date: 20060501
  Serious: Yes (Other)
  Sender: FDA-Public Use
  Company Number: 2005167254

PATIENT
  Age: 70 Year
  Sex: Male
  Weight: 90.7194 kg

DRUGS (8)
  1. VIAGRA [Suspect]
     Indication: ERECTILE DYSFUNCTION
     Dosage: 50 MG (50 MG, AS NECESSARY),
     Dates: start: 20050101, end: 20050101
  2. TOPROL-XL [Concomitant]
  3. ATACAND [Concomitant]
  4. NAMENDA [Concomitant]
  5. IRON (IRON) [Concomitant]
  6. FIBERCON (POLYCARBOPHIL CALCIUM) [Concomitant]
  7. LEXAPRO [Concomitant]
  8. LIBRIUM [Concomitant]

REACTIONS (3)
  - DEMENTIA [None]
  - DRUG INEFFECTIVE [None]
  - HIP ARTHROPLASTY [None]
